FAERS Safety Report 17166052 (Version 3)
Quarter: 2020Q2

REPORT INFORMATION
  Report Type: Spontaneous
  Country: US (occurrence: US)
  Receive Date: 20191217
  Receipt Date: 20200410
  Transmission Date: 20200713
  Serious: No
  Sender: FDA-Public Use
  Company Number: US-SA-2019SA345307

PATIENT
  Age: 76 Year
  Sex: Male

DRUGS (8)
  1. ATENOLOL. [Concomitant]
     Active Substance: ATENOLOL
     Dosage: 1 DF, QD
     Route: 048
  2. DUTASTERIDE. [Concomitant]
     Active Substance: DUTASTERIDE
     Dosage: 1 DF, QD
     Route: 048
  3. ATORVASTATIN [Concomitant]
     Active Substance: ATORVASTATIN
     Dosage: 1 DF, QD
     Route: 048
  4. PROTONIX [OMEPRAZOLE] [Concomitant]
     Active Substance: OMEPRAZOLE
  5. DUPIXENT [Suspect]
     Active Substance: DUPILUMAB
     Indication: DERMATITIS
     Dosage: 300MG/2ML,QOW
     Route: 058
     Dates: start: 20190821
  6. NITROSTAT [Concomitant]
     Active Substance: NITROGLYCERIN
     Dosage: 1 DF, QM
  7. ASPIRIN (E.C.) [Concomitant]
     Active Substance: ASPIRIN
     Dosage: 1 DF, QD
     Route: 048
  8. CENTRUM SILVER MEN 50+ [Concomitant]
     Active Substance: MINERALS\VITAMINS
     Dosage: 1 DF, QD
     Route: 048

REACTIONS (8)
  - Pigmentation disorder [Unknown]
  - Papule [Unknown]
  - Discomfort [Not Recovered/Not Resolved]
  - Neoplasm [Unknown]
  - Actinic keratosis [Unknown]
  - Eczema [Not Recovered/Not Resolved]
  - Rash [Recovering/Resolving]
  - Hyperkeratosis [Unknown]

NARRATIVE: CASE EVENT DATE: 20191206
